FAERS Safety Report 23598279 (Version 2)
Quarter: 2024Q4

REPORT INFORMATION
  Report Type: Report from Study
  Country: JP (occurrence: JP)
  Receive Date: 20240305
  Receipt Date: 20241010
  Transmission Date: 20250114
  Serious: Yes (Other)
  Sender: AMGEN
  Company Number: JP-Vifor (International) Inc.-VIT-2024-01703

PATIENT
  Age: 70 Year
  Sex: Female
  Weight: 36.3 kg

DRUGS (10)
  1. AVACOPAN [Suspect]
     Active Substance: AVACOPAN
     Indication: Microscopic polyangiitis
     Dosage: 30 MILLIGRAM, Q12H (BID)
     Route: 048
     Dates: start: 20230407
  2. PREDNISOLONE [Concomitant]
     Active Substance: PREDNISOLONE
     Indication: Microscopic polyangiitis
     Dosage: 30 MILLIGRAM, QD (PERORAL MEDICINE)
     Route: 048
  3. PREDNISOLONE [Concomitant]
     Active Substance: PREDNISOLONE
     Dosage: 25 MILLIGRAM, QD (PERORAL MEDICINE)
     Route: 048
     Dates: start: 20230418, end: 20230501
  4. PREDNISOLONE [Concomitant]
     Active Substance: PREDNISOLONE
     Dosage: 20 MILLIGRAM, QD (PERORAL MEDICINE)
     Route: 048
     Dates: start: 20230502, end: 20230608
  5. PREDNISOLONE [Concomitant]
     Active Substance: PREDNISOLONE
     Dosage: 17.5 MILLIGRAM, QD (PERORAL MEDICINE)
     Route: 048
     Dates: start: 20230609, end: 20230706
  6. PREDNISOLONE [Concomitant]
     Active Substance: PREDNISOLONE
     Dosage: 15 MILLIGRAM, QD (PERORAL MEDICINE)
     Route: 048
     Dates: start: 20230707, end: 20230908
  7. PREDNISOLONE [Concomitant]
     Active Substance: PREDNISOLONE
     Dosage: 12.5 MILLIGRAM, QD (PERORAL MEDICINE)
     Route: 048
     Dates: start: 20230909, end: 20231109
  8. PREDNISOLONE [Concomitant]
     Active Substance: PREDNISOLONE
     Dosage: 10 MILLIGRAM, QD (PERORAL MEDICINE)
     Route: 048
     Dates: start: 20231110, end: 20240125
  9. METHYLPREDNISOLONE SODIUM SUCCINATE [Concomitant]
     Active Substance: METHYLPREDNISOLONE SODIUM SUCCINATE
     Indication: Microscopic polyangiitis
     Dosage: 500 MILLIGRAM, QD
     Route: 040
     Dates: end: 20230329
  10. SULFAMETHOXAZOLE\TRIMETHOPRIM [Concomitant]
     Active Substance: SULFAMETHOXAZOLE\TRIMETHOPRIM
     Indication: Antifungal prophylaxis
     Dosage: 1920 MILLIGRAM, QWK (PERORAL MEDICINE)
     Route: 048

REACTIONS (2)
  - Liver disorder [Recovering/Resolving]
  - Diabetes mellitus [Unknown]

NARRATIVE: CASE EVENT DATE: 20230512
